FAERS Safety Report 7638484-8 (Version None)
Quarter: 2011Q3

REPORT INFORMATION
  Report Type: 
  Country: None (occurrence: None)
  Receive Date: 20110727
  Receipt Date: 20110715
  Transmission Date: 20111222
  Serious: Yes (Hospitalization)
  Sender: FDA-Public Use
  Company Number: LV-UCBSA-034195

PATIENT
  Age: 11 Year
  Sex: Male
  Weight: 46 kg

DRUGS (2)
  1. VIMPAT [Suspect]
     Route: 048
     Dates: start: 20110510, end: 20110511
  2. VIMPAT [Suspect]
     Indication: STATUS EPILEPTICUS
     Route: 042
     Dates: start: 20110504, end: 20110510

REACTIONS (3)
  - DERMATITIS ALLERGIC [None]
  - RASH PAPULAR [None]
  - HAEMATURIA [None]
